FAERS Safety Report 18012873 (Version 1)
Quarter: 2020Q3

REPORT INFORMATION
  Report Type: Other
  Country: CA (occurrence: CA)
  Receive Date: 20200713
  Receipt Date: 20200713
  Transmission Date: 20201103
  Serious: Yes (Life-Threatening)
  Sender: FDA-Public Use
  Company Number: CA-EMCURE PHARMACEUTICALS LTD-2020-EPL-000867

PATIENT
  Age: 6 Year
  Sex: Male

DRUGS (7)
  1. PROPOFOL. [Concomitant]
     Active Substance: PROPOFOL
     Route: 042
  2. TORADOL [Concomitant]
     Active Substance: KETOROLAC TROMETHAMINE
     Route: 030
  3. REMIFENTANIL [Concomitant]
     Active Substance: REMIFENTANIL
     Route: 042
  4. ONDANSETRON [Suspect]
     Active Substance: ONDANSETRON
     Indication: PROCEDURAL NAUSEA
     Dosage: 1 DOSAGE FORM
     Route: 040
  5. GRAVOL [Concomitant]
     Active Substance: DIMENHYDRINATE
  6. LIDOCAINE. [Concomitant]
     Active Substance: LIDOCAINE
     Route: 061
  7. MORPHINE [Concomitant]
     Active Substance: MORPHINE

REACTIONS (5)
  - Cyanosis [Unknown]
  - Respiratory arrest [Unknown]
  - Oxygen saturation decreased [Unknown]
  - Electrocardiogram QT prolonged [Unknown]
  - Resuscitation [Unknown]
